FAERS Safety Report 11149615 (Version 1)
Quarter: 2015Q2

REPORT INFORMATION
  Report Type: Spontaneous
  Country: AU (occurrence: AU)
  Receive Date: 20150529
  Receipt Date: 20150529
  Transmission Date: 20150821
  Serious: Yes (Death, Hospitalization, Other)
  Sender: FDA-Public Use
  Company Number: AU-BRISTOL-MYERS SQUIBB COMPANY-BMS-2015-033413

PATIENT
  Age: 72 Year
  Sex: Male

DRUGS (1)
  1. YERVOY [Suspect]
     Active Substance: IPILIMUMAB
     Indication: MALIGNANT MELANOMA
     Dosage: 3 MG/KG, Q3WK
     Route: 065
     Dates: start: 201108, end: 201110

REACTIONS (8)
  - Sepsis [Fatal]
  - Arthralgia [Unknown]
  - Acute kidney injury [Unknown]
  - Diabetes insipidus [Unknown]
  - Lymphocytic hypophysitis [Fatal]
  - Pancreatic neoplasm [Unknown]
  - Rash erythematous [Unknown]
  - Toxicity to various agents [Unknown]
